FAERS Safety Report 21540854 (Version 1)
Quarter: 2022Q4

REPORT INFORMATION
  Report Type: Spontaneous
  Country: US (occurrence: US)
  Receive Date: 20221102
  Receipt Date: 20221102
  Transmission Date: 20230113
  Serious: Yes (Life-Threatening, Hospitalization, Other)
  Sender: FDA-Public Use
  Company Number: US-drreddys-SPO/USA/22/0156605

PATIENT
  Age: 55 Year
  Sex: Female

DRUGS (5)
  1. METOPROLOL SUCCINATE [Interacting]
     Active Substance: METOPROLOL SUCCINATE
     Indication: Product used for unknown indication
  2. OMEPRAZOLE [Interacting]
     Active Substance: OMEPRAZOLE
     Indication: Product used for unknown indication
  3. ESCITALOPRAM [Interacting]
     Active Substance: ESCITALOPRAM OXALATE
     Indication: Product used for unknown indication
  4. ESCITALOPRAM [Interacting]
     Active Substance: ESCITALOPRAM OXALATE
  5. DILTIAZEM HYDROCHLORIDE [Suspect]
     Active Substance: DILTIAZEM HYDROCHLORIDE
     Indication: Product used for unknown indication
     Dosage: LONG-ACTING

REACTIONS (3)
  - Atrioventricular block complete [Recovering/Resolving]
  - Drug interaction [Unknown]
  - Drug level increased [Unknown]
